FAERS Safety Report 15899640 (Version 4)
Quarter: 2019Q2

REPORT INFORMATION
  Report Type: Spontaneous
  Country: US (occurrence: US)
  Receive Date: 20190201
  Receipt Date: 20190621
  Transmission Date: 20190711
  Serious: Yes (Other)
  Sender: FDA-Public Use
  Company Number: US-ASTRAZENECA-2018SF14905

PATIENT
  Age: 673 Month
  Sex: Male
  Weight: 103.9 kg

DRUGS (43)
  1. DEXILANT [Suspect]
     Active Substance: DEXLANSOPRAZOLE
     Indication: GASTROOESOPHAGEAL REFLUX DISEASE
     Route: 065
     Dates: start: 20151202, end: 20170830
  2. CLONIDINE. [Concomitant]
     Active Substance: CLONIDINE
  3. FUROSEMIDE. [Concomitant]
     Active Substance: FUROSEMIDE
  4. VITAMIN D [Concomitant]
     Active Substance: VITAMIN D NOS
  5. VITAMIN C [Concomitant]
     Active Substance: ASCORBIC ACID
  6. NEXIUM [Suspect]
     Active Substance: ESOMEPRAZOLE MAGNESIUM
     Indication: GASTROOESOPHAGEAL REFLUX DISEASE
     Route: 048
     Dates: start: 20150605
  7. NEXIUM [Suspect]
     Active Substance: ESOMEPRAZOLE MAGNESIUM
     Indication: GASTROOESOPHAGEAL REFLUX DISEASE
     Route: 048
     Dates: start: 20110513, end: 20150831
  8. DEXILANT [Suspect]
     Active Substance: DEXLANSOPRAZOLE
     Indication: GASTROOESOPHAGEAL REFLUX DISEASE
     Dosage: TAKE 1 CAPSULE BY MOUTH EVERY DAY.
     Route: 065
     Dates: start: 20170601
  9. PREDNISONE. [Concomitant]
     Active Substance: PREDNISONE
  10. NAPROXEN. [Concomitant]
     Active Substance: NAPROXEN
  11. DICLOFENAC SODIUM. [Concomitant]
     Active Substance: DICLOFENAC SODIUM
  12. TUMS [Concomitant]
     Active Substance: CALCIUM CARBONATE
     Dosage: 2-3 TABLETS
     Dates: start: 2000, end: 2010
  13. NEXIUM [Suspect]
     Active Substance: ESOMEPRAZOLE MAGNESIUM
     Indication: GASTROOESOPHAGEAL REFLUX DISEASE
     Route: 048
     Dates: start: 201105, end: 201708
  14. NEXIUM [Suspect]
     Active Substance: ESOMEPRAZOLE MAGNESIUM
     Indication: GASTROOESOPHAGEAL REFLUX DISEASE
     Route: 048
     Dates: start: 20110513, end: 20150831
  15. MINOXIDIL. [Concomitant]
     Active Substance: MINOXIDIL
  16. LOSARTAN. [Concomitant]
     Active Substance: LOSARTAN
  17. PRAVASTATIN. [Concomitant]
     Active Substance: PRAVASTATIN
  18. FLUTICASONE. [Concomitant]
     Active Substance: FLUTICASONE
  19. NIFEDICAL XL [Concomitant]
     Active Substance: NIFEDIPINE
  20. CARVIEDIOL [Concomitant]
  21. OMEPRAZOLE. [Suspect]
     Active Substance: OMEPRAZOLE
     Indication: GASTROOESOPHAGEAL REFLUX DISEASE
     Dosage: GENERIC
     Route: 065
  22. CLONIDINE. [Concomitant]
     Active Substance: CLONIDINE
  23. CATAPRES [Concomitant]
     Active Substance: CLONIDINE HYDROCHLORIDE
  24. ATENOLOL. [Concomitant]
     Active Substance: ATENOLOL
  25. CIPROFLOXACIN. [Concomitant]
     Active Substance: CIPROFLOXACIN
  26. HEPARIN [Concomitant]
     Active Substance: HEPARIN SODIUM
  27. TYLENOL [Concomitant]
     Active Substance: ACETAMINOPHEN
     Dosage: TAKE FOR MORE THAN 5 YEARS
  28. MAGNESIUM [Concomitant]
     Active Substance: MAGNESIUM
     Indication: MUSCLE SPASMS
     Dosage: FOR MORE THAN 2 YEARS
  29. RANITIDINE. [Concomitant]
     Active Substance: RANITIDINE
     Dosage: GNERIC
     Dates: start: 2018
  30. DEXILANT [Suspect]
     Active Substance: DEXLANSOPRAZOLE
     Indication: GASTROOESOPHAGEAL REFLUX DISEASE
     Route: 065
     Dates: start: 201105, end: 201708
  31. ZEMPLAR [Concomitant]
     Active Substance: PARICALCITOL
  32. CYCLOBENZAPRINE. [Concomitant]
     Active Substance: CYCLOBENZAPRINE
  33. FUROSEMIDE. [Concomitant]
     Active Substance: FUROSEMIDE
  34. NEXIUM [Suspect]
     Active Substance: ESOMEPRAZOLE MAGNESIUM
     Indication: GASTROOESOPHAGEAL REFLUX DISEASE
     Dosage: GENERIC
     Route: 048
     Dates: start: 2018
  35. FLUPHENAZINE [Concomitant]
     Active Substance: FLUPHENAZINE
  36. OMEPRAZOLE. [Suspect]
     Active Substance: OMEPRAZOLE
     Indication: GASTROOESOPHAGEAL REFLUX DISEASE
     Dosage: GENERIC
     Route: 065
     Dates: start: 20171130, end: 20180810
  37. CARVEDILOL. [Concomitant]
     Active Substance: CARVEDILOL
  38. ACETAMINOPHEN. [Concomitant]
     Active Substance: ACETAMINOPHEN
  39. FUROSEMIDE. [Concomitant]
     Active Substance: FUROSEMIDE
  40. ZOLPIDEM [Concomitant]
     Active Substance: ZOLPIDEM\ZOLPIDEM TARTRATE
  41. HYDROCHLOROTHIAZIDE. [Concomitant]
     Active Substance: HYDROCHLOROTHIAZIDE
  42. POTASSIUM [Concomitant]
     Active Substance: POTASSIUM
     Indication: MYOCARDIAL INFARCTION
     Dosage: TAKE FOR MORE THAN 5 YEARS
  43. PEPCID AC(OTC) [Concomitant]

REACTIONS (6)
  - Chronic kidney disease [Not Recovered/Not Resolved]
  - Nephrogenic anaemia [Unknown]
  - Acute kidney injury [Not Recovered/Not Resolved]
  - End stage renal disease [Not Recovered/Not Resolved]
  - Hyperparathyroidism secondary [Unknown]
  - Renal failure [Unknown]

NARRATIVE: CASE EVENT DATE: 201504
